FAERS Safety Report 9104265 (Version 1)
Quarter: 2013Q1

REPORT INFORMATION
  Report Type: Spontaneous
  Country: US (occurrence: US)
  Receive Date: 20130219
  Receipt Date: 20130219
  Transmission Date: 20140127
  Serious: Yes (Other)
  Sender: FDA-Public Use
  Company Number: PHEH2013US003722

PATIENT
  Sex: Female

DRUGS (2)
  1. DIOVAN HCT [Suspect]
     Dosage: 160 MG VALS/12.5 MG HCT UNK
  2. METFORMIN [Concomitant]
     Dosage: UNK UKN, UNK

REACTIONS (2)
  - Diabetes mellitus [Unknown]
  - Uterine obstruction [Unknown]
